FAERS Safety Report 6247364-4 (Version None)
Quarter: 2009Q2

REPORT INFORMATION
  Report Type: 
  Country: None (occurrence: None)
  Receive Date: 20090626
  Receipt Date: 20090618
  Transmission Date: 20091009
  Serious: Yes (Congenital Anomaly)
  Sender: FDA-Public Use
  Company Number: B0578457A

PATIENT

DRUGS (2)
  1. LAMICTIN [Suspect]
     Indication: BIPOLAR DISORDER
     Dates: start: 20060822
  2. CIPRALEX [Concomitant]
     Indication: BIPOLAR DISORDER
     Dates: start: 20060822

REACTIONS (2)
  - DRUG EXPOSURE DURING PREGNANCY [None]
  - SPINA BIFIDA OCCULTA [None]
